FAERS Safety Report 9835356 (Version 2)
Quarter: 2014Q1

REPORT INFORMATION
  Report Type: Spontaneous
  Country: US (occurrence: US)
  Receive Date: 20140122
  Receipt Date: 20140122
  Transmission Date: 20141002
  Serious: No
  Sender: FDA-Public Use
  Company Number: US-BRISTOL-MYERS SQUIBB COMPANY-19495324

PATIENT
  Age: 69 Year
  Sex: Male
  Weight: 83.9 kg

DRUGS (5)
  1. ELIQUIS [Suspect]
     Indication: DIZZINESS
     Dates: start: 2013
  2. ELIQUIS [Suspect]
     Indication: DISORIENTATION
     Dates: start: 2013
  3. ELIQUIS [Suspect]
     Indication: ATRIAL FIBRILLATION
     Dates: start: 2013
  4. SIMVASTATIN [Concomitant]
  5. ANDROGEL [Concomitant]
     Dosage: 1DF:1.62PUMPS/D

REACTIONS (1)
  - Arthralgia [Unknown]
